FAERS Safety Report 5141957-3 (Version None)
Quarter: 2006Q4

REPORT INFORMATION
  Report Type: 
  Country: None (occurrence: None)
  Receive Date: 20061102
  Receipt Date: 20050906
  Transmission Date: 20070319
  Serious: Yes (Disabling, Other)
  Sender: FDA-Public Use
  Company Number: PHHO2005CA14050

PATIENT
  Age: 77 Year
  Sex: Male

DRUGS (11)
  1. BETOPTIC [Concomitant]
  2. LIPITOR [Concomitant]
  3. XALATAN [Concomitant]
  4. SANDOSTATIN LAR [Suspect]
     Indication: CARCINOID TUMOUR
     Dosage: 10 MG EVERY 4 FOUR WEEKS
     Dates: end: 20060921
  5. SANDOSTATIN LAR [Suspect]
     Dosage: 30 MG, EVERY 3 WEEKS
     Dates: start: 20010904
  6. SANDOSTATIN LAR [Suspect]
     Dosage: 20 MG, EVERY 4 WEEKS
  7. METHAZOLAMIDE [Concomitant]
  8. BRIMONIDINE OPHTHALMIC [Concomitant]
  9. PARIET [Concomitant]
  10. ATIVAN [Concomitant]
  11. ASPIRIN [Concomitant]

REACTIONS (7)
  - ASTHENIA [None]
  - BRADYCARDIA [None]
  - DIARRHOEA [None]
  - HYPOTENSION [None]
  - LUNG INFECTION [None]
  - MALAISE [None]
  - SINUSITIS [None]
